FAERS Safety Report 17023252 (Version 3)
Quarter: 2020Q1

REPORT INFORMATION
  Report Type: Report from Study
  Country: CA (occurrence: CA)
  Receive Date: 20191112
  Receipt Date: 20200117
  Transmission Date: 20200409
  Serious: Yes (Death, Life-Threatening)
  Sender: FDA-Public Use
  Company Number: CA-REGENERON PHARMACEUTICALS, INC.-2019-65949

PATIENT

DRUGS (1)
  1. CEMIPLIMAB [Suspect]
     Active Substance: CEMIPLIMAB
     Indication: METASTATIC SQUAMOUS CELL CARCINOMA
     Dosage: UNK UNK, QCY
     Route: 042
     Dates: start: 20191029, end: 20191029

REACTIONS (3)
  - Dyspnoea [Fatal]
  - Pleural effusion [Fatal]
  - Therapy cessation [Unknown]

NARRATIVE: CASE EVENT DATE: 20191031
